FAERS Safety Report 5833093-5 (Version None)
Quarter: 2008Q3

REPORT INFORMATION
  Report Type: 
  Country: None (occurrence: None)
  Receive Date: 20080805
  Receipt Date: 20080724
  Transmission Date: 20090109
  Serious: Yes (Other)
  Sender: FDA-Public Use
  Company Number: FR-ASTRAZENECA-2008CG01131

PATIENT
  Age: 45 Year
  Sex: Female

DRUGS (4)
  1. ARIMIDEX [Suspect]
     Indication: BREAST CANCER FEMALE
     Route: 048
     Dates: start: 20070901
  2. PREVISCAN [Interacting]
     Indication: JUGULAR VEIN THROMBOSIS
     Route: 048
     Dates: end: 20080724
  3. ANTIANGIOGENESIS [Concomitant]
     Indication: BREAST CANCER FEMALE
     Dates: end: 20080601
  4. HEPARIN [Concomitant]
     Indication: JUGULAR VEIN THROMBOSIS
     Route: 042

REACTIONS (5)
  - CATHETER THROMBOSIS [None]
  - DRUG INTERACTION [None]
  - GAMMA-GLUTAMYLTRANSFERASE INCREASED [None]
  - INTERNATIONAL NORMALISED RATIO INCREASED [None]
  - JUGULAR VEIN THROMBOSIS [None]
